FAERS Safety Report 5690512-5 (Version None)
Quarter: 2008Q1

REPORT INFORMATION
  Report Type: 
  Country: None (occurrence: None)
  Receive Date: 20080331
  Receipt Date: 20080331
  Transmission Date: 20080703
  Serious: Yes (Other)
  Sender: FDA-Public Use
  Company Number: None

PATIENT
  Age: 8 Year
  Sex: Male
  Weight: 40.8237 kg

DRUGS (1)
  1. SINGULAIR [Suspect]
     Indication: ASTHMA
     Dosage: 5MG TABLET ONCE DAILY
     Dates: start: 20020101, end: 20080327

REACTIONS (8)
  - ABDOMINAL PAIN UPPER [None]
  - ANXIETY [None]
  - DEPRESSION [None]
  - FEAR [None]
  - MOOD SWINGS [None]
  - MORBID THOUGHTS [None]
  - PAIN IN EXTREMITY [None]
  - PANIC REACTION [None]
